FAERS Safety Report 12183473 (Version 1)
Quarter: 2016Q1

REPORT INFORMATION
  Report Type: Spontaneous
  Country: US (occurrence: None)
  Receive Date: 20160315
  Receipt Date: 20160315
  Transmission Date: 20160526
  Serious: No
  Sender: FDA-Public Use
  Company Number: None

PATIENT

DRUGS (1)
  1. LEVOFLOXACIN. [Suspect]
     Active Substance: LEVOFLOXACIN
     Indication: PNEUMONIA
     Dosage: 1 A DAY 10DAYS
     Route: 048
     Dates: start: 20160209, end: 20160219

REACTIONS (2)
  - Muscle rupture [None]
  - Pain in extremity [None]
